FAERS Safety Report 9669994 (Version 1)
Quarter: 2013Q4

REPORT INFORMATION
  Report Type: Other
  Country: US (occurrence: US)
  Receive Date: 20131105
  Receipt Date: 20131105
  Transmission Date: 20140711
  Serious: Yes (Hospitalization)
  Sender: FDA-Public Use
  Company Number: US-BRISTOL-MYERS SQUIBB COMPANY-19707389

PATIENT
  Age: 53 Year
  Sex: Male

DRUGS (7)
  1. VALSARTAN [Concomitant]
  2. EZETIMIBE [Concomitant]
  3. SIMVASTATIN [Concomitant]
  4. METFORMIN HCL [Suspect]
  5. VICTOZA [Suspect]
     Indication: TYPE 2 DIABETES MELLITUS
     Dosage: 0.6MG,SUBQ
     Route: 058
  6. GLYBURIDE [Concomitant]
  7. ROSIGLITAZONE [Concomitant]

REACTIONS (8)
  - Accidental overdose [Unknown]
  - Dry mouth [Unknown]
  - Abdominal discomfort [Recovered/Resolved]
  - Headache [Not Recovered/Not Resolved]
  - Nausea [Not Recovered/Not Resolved]
  - Vomiting [Unknown]
  - Abdominal pain [Unknown]
  - Aspartate aminotransferase increased [Unknown]
